FAERS Safety Report 13587440 (Version 5)
Quarter: 2018Q4

REPORT INFORMATION
  Report Type: Report from Study
  Country: US (occurrence: US)
  Receive Date: 20170526
  Receipt Date: 20181106
  Transmission Date: 20190204
  Serious: Yes (Hospitalization)
  Sender: FDA-Public Use
  Company Number: US-ACTELION-A-US2017-154435

PATIENT
  Age: 63 Year
  Sex: Female
  Weight: 80.73 kg

DRUGS (4)
  1. PREDNISONE. [Concomitant]
     Active Substance: PREDNISONE
     Dosage: UNK
     Dates: end: 201808
  2. UPTRAVI [Suspect]
     Active Substance: SELEXIPAG
     Indication: PULMONARY ARTERIAL HYPERTENSION
     Dosage: 600 MCG, BID
     Route: 048
  3. REVATIO [Concomitant]
     Active Substance: SILDENAFIL CITRATE
  4. UPTRAVI [Suspect]
     Active Substance: SELEXIPAG
     Dosage: 300 MCG, BID
     Route: 048

REACTIONS (13)
  - Oxygen therapy [Unknown]
  - Insomnia [Unknown]
  - Arthralgia [Unknown]
  - Cardiac operation [Unknown]
  - Vomiting [Unknown]
  - Myalgia [Unknown]
  - Treatment noncompliance [Unknown]
  - Nausea [Unknown]
  - Gastrointestinal disorder [Unknown]
  - Atrial septal defect repair [Unknown]
  - Renal transplant [Unknown]
  - Joint stiffness [Unknown]
  - Headache [Unknown]

NARRATIVE: CASE EVENT DATE: 20170509
